FAERS Safety Report 12674446 (Version 1)
Quarter: 2016Q3

REPORT INFORMATION
  Report Type: Spontaneous
  Country: US (occurrence: US)
  Receive Date: 20160822
  Receipt Date: 20160822
  Transmission Date: 20161109
  Serious: No
  Sender: FDA-Public Use
  Company Number: US-BEH-2016058735

PATIENT
  Sex: Male
  Weight: 95.71 kg

DRUGS (33)
  1. ADDERALL [Concomitant]
     Active Substance: AMPHETAMINE ASPARTATE\AMPHETAMINE SULFATE\DEXTROAMPHETAMINE SACCHARATE\DEXTROAMPHETAMINE SULFATE
  2. ALBUTEROL SULFATE. [Concomitant]
     Active Substance: ALBUTEROL SULFATE
  3. MUCINEX ER [Concomitant]
  4. VITAMIN B12 [Concomitant]
     Active Substance: CYANOCOBALAMIN
  5. HEPARIN [Concomitant]
     Active Substance: HEPARIN SODIUM
  6. BROVANA [Concomitant]
     Active Substance: ARFORMOTEROL TARTRATE
  7. QVAR [Concomitant]
     Active Substance: BECLOMETHASONE DIPROPIONATE
  8. FLUTICASONE [Concomitant]
     Active Substance: FLUTICASONE\FLUTICASONE PROPIONATE
  9. OMNARIS [Concomitant]
     Active Substance: CICLESONIDE
  10. CLARITIN-D 12 HOUR [Concomitant]
     Active Substance: LORATADINE\PSEUDOEPHEDRINE SULFATE
  11. METHYLPHENIDATE ER [Concomitant]
     Active Substance: METHYLPHENIDATE
  12. HEPARIN [Concomitant]
     Active Substance: HEPARIN SODIUM
  13. EPIPEN [Concomitant]
     Active Substance: EPINEPHRINE
  14. DALIRESP [Concomitant]
     Active Substance: ROFLUMILAST
  15. ALLOPURINOL. [Concomitant]
     Active Substance: ALLOPURINOL
  16. VITAMIN D [Concomitant]
     Active Substance: CHOLECALCIFEROL
  17. MUPIROCIN. [Concomitant]
     Active Substance: MUPIROCIN
  18. VENTOLIN [Concomitant]
     Active Substance: ALBUTEROL SULFATE
  19. ANORO ELLIPTA [Concomitant]
     Active Substance: UMECLIDINIUM BROMIDE\VILANTEROL TRIFENATATE
  20. FISH OIL [Concomitant]
     Active Substance: FISH OIL
  21. PROAIR HFA [Concomitant]
     Active Substance: ALBUTEROL SULFATE
  22. ZEMAIRA [Suspect]
     Active Substance: .ALPHA.1-PROTEINASE INHIBITOR HUMAN
     Indication: EMPHYSEMA
  23. DIPHENHYDRAMINE. [Concomitant]
     Active Substance: DIPHENHYDRAMINE
  24. LIDOCAINE. [Concomitant]
     Active Substance: LIDOCAINE
  25. SODIUM CHLORIDE. [Concomitant]
     Active Substance: SODIUM CHLORIDE
  26. IPRATROPIUM BROMIDE. [Concomitant]
     Active Substance: IPRATROPIUM BROMIDE
  27. LEXAPRO [Concomitant]
     Active Substance: ESCITALOPRAM OXALATE
  28. DAILY MULTIVITAMIN [Concomitant]
     Active Substance: VITAMINS
  29. ZEMAIRA [Suspect]
     Active Substance: .ALPHA.1-PROTEINASE INHIBITOR HUMAN
     Indication: ALPHA-1 ANTI-TRYPSIN DEFICIENCY
     Route: 042
  30. CODEINE SULFATE. [Concomitant]
     Active Substance: CODEINE SULFATE
  31. ZITHROMAX [Concomitant]
     Active Substance: AZITHROMYCIN DIHYDRATE
  32. NASONEX [Concomitant]
     Active Substance: MOMETASONE FUROATE
  33. BIOTIN [Concomitant]
     Active Substance: BIOTIN

REACTIONS (1)
  - Sinusitis [Unknown]
